FAERS Safety Report 24235382 (Version 1)
Quarter: 2024Q3

REPORT INFORMATION
  Report Type: Spontaneous
  Country: BE (occurrence: BE)
  Receive Date: 20240821
  Receipt Date: 20240821
  Transmission Date: 20241016
  Serious: Yes (Disabling)
  Sender: ESPERION THERAPEUTICS
  Company Number: None

PATIENT

DRUGS (1)
  1. BEMPEDOIC ACID [Suspect]
     Active Substance: BEMPEDOIC ACID
     Indication: Hypercholesterolaemia
     Dosage: 1 DF, QD (MORNING DURING BREAKFAST)
     Route: 048
     Dates: start: 20240515, end: 20240715

REACTIONS (3)
  - Tendon pain [Recovering/Resolving]
  - Myalgia [Recovered/Resolved]
  - Muscle spasms [Recovered/Resolved]

NARRATIVE: CASE EVENT DATE: 20240615
